FAERS Safety Report 21162610 (Version 1)
Quarter: 2022Q3

REPORT INFORMATION
  Report Type: Spontaneous
  Country: US (occurrence: None)
  Receive Date: 20220802
  Receipt Date: 20220802
  Transmission Date: 20221027
  Serious: No
  Sender: FDA-Public Use
  Company Number: None

PATIENT
  Age: 38 Year
  Sex: Male
  Weight: 54 kg

DRUGS (2)
  1. ATOMOXETINE [Suspect]
     Active Substance: ATOMOXETINE
     Indication: Attention deficit hyperactivity disorder
     Dosage: OTHER QUANTITY : 1 CAPSULE(S);?
     Route: 048
     Dates: start: 20220801, end: 20220802
  2. BABY ASPIIRIN [Concomitant]

REACTIONS (11)
  - Urticaria [None]
  - Pruritus [None]
  - Myalgia [None]
  - Muscular weakness [None]
  - Renal pain [None]
  - Dysuria [None]
  - Nausea [None]
  - Body temperature increased [None]
  - Erectile dysfunction [None]
  - Dysphagia [None]
  - Hypophagia [None]

NARRATIVE: CASE EVENT DATE: 20220802
